FAERS Safety Report 9106584 (Version 1)
Quarter: 2013Q1

REPORT INFORMATION
  Report Type: Spontaneous
  Country: FR (occurrence: FR)
  Receive Date: 20130221
  Receipt Date: 20130221
  Transmission Date: 20140127
  Serious: Yes (Hospitalization, Other)
  Sender: FDA-Public Use
  Company Number: FR-ELI_LILLY_AND_COMPANY-FR201302003000

PATIENT
  Age: 89 Year
  Sex: Male

DRUGS (16)
  1. ZYPREXA [Suspect]
     Dosage: 5 MG, UNKNOWN
     Route: 065
     Dates: start: 20121117
  2. ZYPREXA [Suspect]
     Dosage: 2.5 MG, UNKNOWN
     Route: 065
     Dates: start: 20121121
  3. NORSET [Concomitant]
     Dosage: UNK
     Dates: start: 201210, end: 20121115
  4. EUPANTOL [Concomitant]
     Dosage: 40 MG, QD
     Dates: start: 20121114, end: 20121120
  5. MIANSERINE [Concomitant]
     Dosage: UNK UNK, UNKNOWN
     Dates: start: 20121119, end: 20121120
  6. TAHOR [Concomitant]
     Dosage: UNK UNK, UNKNOWN
     Route: 065
     Dates: end: 20121117
  7. ZYLORIC [Concomitant]
     Dosage: UNK UNK, UNKNOWN
     Dates: end: 20121117
  8. SEROPRAM [Concomitant]
     Dosage: 20 MG, UNKNOWN
     Route: 065
  9. LOVENOX [Concomitant]
     Dosage: UNK UNK, UNKNOWN
  10. HYDREA [Concomitant]
     Dosage: 2 DF, UNKNOWN
     Route: 065
     Dates: end: 20121121
  11. RAMIPRIL [Concomitant]
     Dosage: UNK UNK, UNKNOWN
  12. XANAX [Concomitant]
     Dosage: UNK UNK, UNKNOWN
  13. MOVICOL [Concomitant]
     Dosage: UNK UNK, UNKNOWN
  14. VITABACT [Concomitant]
     Dosage: UNK UNK, UNKNOWN
  15. KARDEGIC [Concomitant]
     Dosage: UNK UNK, UNKNOWN
     Dates: end: 20121120
  16. PREVISCAN [Concomitant]
     Dosage: UNK UNK, UNKNOWN
     Dates: start: 20121120

REACTIONS (4)
  - Depression [Unknown]
  - Asthenia [Unknown]
  - Neutropenia [Recovered/Resolved]
  - Leukopenia [Unknown]
